FAERS Safety Report 8976340 (Version 1)
Quarter: 2012Q4

REPORT INFORMATION
  Report Type: 
  Country: US (occurrence: US)
  Receive Date: 20121219
  Receipt Date: 20121219
  Transmission Date: 20130627
  Serious: No
  Sender: FDA-Public Use
  Company Number: US-AMGEN-USASP2012062905

PATIENT
  Age: 74 Year
  Sex: Female

DRUGS (6)
  1. PROLIA [Suspect]
     Indication: PRODUCT USED FOR UNKNOWN INDICATION
     Dosage: UNK
     Dates: start: 201112
  2. CALCIUM [Concomitant]
     Dosage: UNK
  3. FISH OIL [Concomitant]
     Dosage: UNK
  4. LOVASTATIN [Concomitant]
     Dosage: UNK
  5. LISINOPRIL [Concomitant]
     Dosage: UNK
  6. RITALIN [Concomitant]
     Dosage: UNK

REACTIONS (5)
  - Fall [Unknown]
  - Contusion [Unknown]
  - Musculoskeletal pain [Recovering/Resolving]
  - Back pain [Unknown]
  - Rotator cuff syndrome [Unknown]
